FAERS Safety Report 25747737 (Version 1)
Quarter: 2025Q3

REPORT INFORMATION
  Report Type: Other
  Country: US (occurrence: US)
  Receive Date: 20250901
  Receipt Date: 20250901
  Transmission Date: 20251020
  Serious: Yes (Hospitalization, Other)
  Sender: SERVIER
  Company Number: US-SERVIER-S25012255

PATIENT

DRUGS (1)
  1. CALASPARGASE PEGOL [Suspect]
     Active Substance: CALASPARGASE PEGOL
     Indication: B-cell type acute leukaemia
     Route: 042

REACTIONS (7)
  - Hypertriglyceridaemia [Recovered/Resolved]
  - Hypertriglyceridaemia [Recovered/Resolved]
  - Hypertriglyceridaemia [Recovered/Resolved]
  - Hypertriglyceridaemia [Recovered/Resolved]
  - Febrile neutropenia [Recovered/Resolved]
  - Tremor [Unknown]
  - Hypertransaminasaemia [Unknown]
